FAERS Safety Report 16681682 (Version 1)
Quarter: 2019Q3

REPORT INFORMATION
  Report Type: Spontaneous
  Country: US (occurrence: US)
  Receive Date: 20190807
  Receipt Date: 20190807
  Transmission Date: 20191007
  Serious: Yes (Other)
  Sender: FDA-Public Use
  Company Number: None

PATIENT
  Age: 57 Year
  Sex: Female
  Weight: 83.25 kg

DRUGS (9)
  1. INTRAROSA [Suspect]
     Active Substance: PRASTERONE
     Indication: MENOPAUSAL SYMPTOMS
     Dosage: ?          QUANTITY:1 SUPPOSITORY(IES);?
     Route: 067
     Dates: start: 20190802, end: 20190804
  2. SERTRALINE [Concomitant]
     Active Substance: SERTRALINE HYDROCHLORIDE
  3. TRAZODONE [Concomitant]
     Active Substance: TRAZODONE HYDROCHLORIDE
  4. INTRAROSA [Suspect]
     Active Substance: PRASTERONE
     Indication: DYSPAREUNIA
     Dosage: ?          QUANTITY:1 SUPPOSITORY(IES);?
     Route: 067
     Dates: start: 20190802, end: 20190804
  5. SLO-MAG (MAGNESIUM CHLORIDE ANHYDROUS) [Concomitant]
     Active Substance: MAGNESIUM CHLORIDE ANHYDROUS
  6. POTASSIUM [Concomitant]
     Active Substance: POTASSIUM
  7. ALLEGRA [Concomitant]
     Active Substance: FEXOFENADINE HYDROCHLORIDE
  8. VITAMIN B-COMPLEX [Concomitant]
     Active Substance: DEXPANTHENOL\NIACINAMIDE\PYRIDOXINE HYDROCHLORIDE\RIBOFLAVIN 5^-PHOSPHATE SODIUM\THIAMINE HYDROCHLORIDE
  9. PANTOPRAZOLE [Concomitant]
     Active Substance: PANTOPRAZOLE

REACTIONS (7)
  - Tremor [None]
  - Product use complaint [None]
  - Anxiety [None]
  - Depression [None]
  - Palpitations [None]
  - Insomnia [None]
  - Emotional distress [None]

NARRATIVE: CASE EVENT DATE: 20190802
